FAERS Safety Report 12702343 (Version 1)
Quarter: 2016Q3

REPORT INFORMATION
  Report Type: Spontaneous
  Country: ES (occurrence: ES)
  Receive Date: 20160831
  Receipt Date: 20160831
  Transmission Date: 20161109
  Serious: Yes (Other)
  Sender: FDA-Public Use
  Company Number: ES-TEVA-688857ISR

PATIENT
  Sex: Male

DRUGS (5)
  1. DEXTROSE 5% [Concomitant]
     Active Substance: DEXTROSE
     Dates: start: 201105, end: 201112
  2. OXALIPLATIN. [Suspect]
     Active Substance: OXALIPLATIN
     Indication: COLON CANCER
     Dosage: ADMINISTERED AS A 2-HOUR INFUSION ON DAY 1
     Dates: start: 201105, end: 201112
  3. FOLINIC ACID [Suspect]
     Active Substance: LEUCOVORIN
     Indication: COLON CANCER
     Dosage: ADMINISTERED AS A 2-HOUR INFUSION ON DAY 1 AND DAY 2
     Dates: start: 201105, end: 201112
  4. FLUOROURACIL. [Suspect]
     Active Substance: FLUOROURACIL
     Indication: COLON CANCER
     Route: 040
     Dates: start: 201105, end: 201112
  5. FLUOROURACIL. [Suspect]
     Active Substance: FLUOROURACIL
     Indication: COLON CANCER
     Dosage: 600 MG/M2 ADMINISTERED VIA AMBULATORY PUMP FOR A PERIOD OF 22 HOURS ON DAY 1 AND DAY 2 EVERY 2 WEEKS
     Route: 040
     Dates: start: 201105, end: 201112

REACTIONS (1)
  - Neurotoxicity [Unknown]
